FAERS Safety Report 9469019 (Version 2)
Quarter: 2013Q3

REPORT INFORMATION
  Report Type: Spontaneous
  Country: GB (occurrence: None)
  Receive Date: 20130815
  Receipt Date: 20130822
  Transmission Date: 20140515
  Serious: Yes (Death, Congenital Anomaly)
  Sender: FDA-Public Use
  Company Number: AUR-APL-2013-06679

PATIENT
  Sex: 0

DRUGS (1)
  1. CITALOPRAM [Suspect]
     Indication: PRODUCT USED FOR UNKNOWN INDICATION
     Route: 064

REACTIONS (3)
  - Maternal drugs affecting foetus [None]
  - Abortion spontaneous [None]
  - Heart disease congenital [None]
